FAERS Safety Report 9967088 (Version 2)
Quarter: 2014Q2

REPORT INFORMATION
  Report Type: Report from Study
  Country: US (occurrence: US)
  Receive Date: 20140305
  Receipt Date: 20140502
  Transmission Date: 20141212
  Serious: Yes (Death)
  Sender: FDA-Public Use
  Company Number: US-ROCHE-1360445

PATIENT
  Sex: Male

DRUGS (2)
  1. LUCENTIS [Suspect]
     Indication: RETINAL VEIN OCCLUSION
     Dosage: 5 INJECTIONS
     Route: 065
     Dates: end: 20131220
  2. LUCENTIS [Suspect]
     Indication: MACULAR OEDEMA

REACTIONS (1)
  - Death [Fatal]
